FAERS Safety Report 14034194 (Version 1)
Quarter: 2017Q4

REPORT INFORMATION
  Report Type: Spontaneous
  Country: US (occurrence: US)
  Receive Date: 20171003
  Receipt Date: 20171003
  Transmission Date: 20180321
  Serious: No
  Sender: FDA-Public Use
  Company Number: US-TEVA-755713USA

PATIENT
  Age: 56 Year
  Sex: Female

DRUGS (3)
  1. ADVIL [Concomitant]
     Active Substance: IBUPROFEN
  2. CLONAZEPAM. [Suspect]
     Active Substance: CLONAZEPAM
     Indication: ANXIETY
     Dosage: 1MG IN THE DAY AND 2MG AT NIGHT
     Route: 065
     Dates: start: 2010
  3. CLONAZEPAM. [Suspect]
     Active Substance: CLONAZEPAM
     Indication: SLEEP DISORDER

REACTIONS (16)
  - Paraesthesia [Unknown]
  - Withdrawal syndrome [Unknown]
  - Hyperhidrosis [Unknown]
  - Sleep disorder [Unknown]
  - Weight decreased [Unknown]
  - Product use in unapproved indication [Unknown]
  - Myalgia [Recovered/Resolved]
  - Drug titration error [Unknown]
  - Feeling abnormal [Unknown]
  - Headache [Unknown]
  - Emotional disorder [Not Recovered/Not Resolved]
  - Arthralgia [Unknown]
  - Vision blurred [Unknown]
  - Feeling cold [Unknown]
  - Abnormal loss of weight [Unknown]
  - Hot flush [Unknown]

NARRATIVE: CASE EVENT DATE: 201702
